FAERS Safety Report 18953707 (Version 2)
Quarter: 2021Q1

REPORT INFORMATION
  Report Type: Spontaneous
  Country: PT (occurrence: PT)
  Receive Date: 20210301
  Receipt Date: 20210321
  Transmission Date: 20210420
  Serious: Yes (Other)
  Sender: FDA-Public Use
  Company Number: PT-TEVA-2021-PT-1884311

PATIENT
  Age: 78 Year
  Sex: Male

DRUGS (6)
  1. DUAKLIR GENUAIR [Concomitant]
     Active Substance: ACLIDINIUM BROMIDE\FORMOTEROL FUMARATE
     Dosage: 2 DOSAGE FORMS
     Route: 055
     Dates: start: 20200312
  2. LEVOFLOXACIN. [Suspect]
     Active Substance: LEVOFLOXACIN
     Indication: URINARY TRACT INFECTION
     Dosage: 500 MG
     Route: 048
     Dates: start: 20210126, end: 20210201
  3. ELIQUIS [Concomitant]
     Active Substance: APIXABAN
     Dosage: 5 MG
     Route: 048
     Dates: start: 20201222
  4. ACETYLSALICYLIC ACID [Concomitant]
     Active Substance: ASPIRIN
     Dosage: 150 MG
     Route: 048
     Dates: start: 20200312
  5. ATARAX [Concomitant]
     Active Substance: HYDROXYZINE HYDROCHLORIDE
     Dosage: 25 MG
     Route: 048
     Dates: start: 20200204
  6. COMIRNATY [Suspect]
     Active Substance: TOZINAMERAN
     Indication: COVID-19 IMMUNISATION
     Dosage: 1ST DOSE: 29?01?2021 , UNIT DOSE : 0.3 ML
     Route: 030
     Dates: start: 20210129

REACTIONS (3)
  - Pruritus [Recovering/Resolving]
  - Skin burning sensation [Recovering/Resolving]
  - Rash macular [Recovering/Resolving]

NARRATIVE: CASE EVENT DATE: 20210130
